FAERS Safety Report 18915478 (Version 3)
Quarter: 2021Q1

REPORT INFORMATION
  Report Type: Report from Study
  Country: CA (occurrence: CA)
  Receive Date: 20210219
  Receipt Date: 20210304
  Transmission Date: 20210420
  Serious: Yes (Hospitalization)
  Sender: FDA-Public Use
  Company Number: CA-GLAXOSMITHKLINE-CA2021AMR043830

PATIENT
  Age: 65 Year
  Sex: Male

DRUGS (1)
  1. MEPOLIZUMAB [Suspect]
     Active Substance: MEPOLIZUMAB
     Indication: ASTHMA
     Dosage: 100 MG, Z, MONTHLY
     Route: 042
     Dates: start: 20190212

REACTIONS (5)
  - Chronic obstructive pulmonary disease [Recovering/Resolving]
  - Oxygen saturation decreased [Recovering/Resolving]
  - Dyspnoea [Recovering/Resolving]
  - Asthma [Recovering/Resolving]
  - Loss of personal independence in daily activities [Recovering/Resolving]

NARRATIVE: CASE EVENT DATE: 202102
